FAERS Safety Report 4721523-1 (Version None)
Quarter: 2005Q3

REPORT INFORMATION
  Report Type: 
  Country: None (occurrence: None)
  Receive Date: 20050721
  Receipt Date: 20041104
  Transmission Date: 20060218
  Serious: No
  Sender: FDA-Public Use
  Company Number: US-BRISTOL-MYERS SQUIBB COMPANY-12755880

PATIENT
  Age: 68 Year
  Sex: Female
  Weight: 75 kg

DRUGS (11)
  1. WARFARIN SODIUM [Suspect]
     Indication: PROPHYLAXIS
     Route: 048
  2. QUININE SULFATE [Concomitant]
  3. HYDROCHLOROTHIAZIDE [Concomitant]
  4. CALCIUM GLUCONATE [Concomitant]
  5. POTASSIUM CHLORIDE [Concomitant]
  6. HYDROXYZINE PAMOATE [Concomitant]
  7. CELEXA [Concomitant]
  8. FOLTX [Concomitant]
  9. CETIRIZINE HCL [Concomitant]
  10. GLUCOSAMINE [Concomitant]
  11. NIACIN [Concomitant]

REACTIONS (3)
  - FEELING ABNORMAL [None]
  - HAEMORRHAGE [None]
  - INTERNATIONAL NORMALISED RATIO INCREASED [None]
